FAERS Safety Report 9156969 (Version 2)
Quarter: 2013Q2

REPORT INFORMATION
  Report Type: Report from Study
  Country: BR (occurrence: BR)
  Receive Date: 20130312
  Receipt Date: 20130517
  Transmission Date: 20140414
  Serious: Yes (Other)
  Sender: FDA-Public Use
  Company Number: PHHY2013BR023692

PATIENT
  Sex: Female

DRUGS (4)
  1. EXELON PATCH [Suspect]
     Indication: MEMORY IMPAIRMENT
     Dosage: 9MG/5CM2 (4.6 MG DAILY)
     Route: 062
     Dates: end: 20130308
  2. DIAMICRON [Concomitant]
     Dosage: 1 TABLET, DAILY
     Route: 048
  3. CITALOR [Concomitant]
     Dosage: 1 ORAL PER DAY
     Route: 048
  4. VITAMIN D [Concomitant]
     Dosage: 1 TABLET, DAILY
     Route: 048

REACTIONS (2)
  - Femur fracture [Recovering/Resolving]
  - Dysstasia [Recovering/Resolving]
